FAERS Safety Report 9397418 (Version 1)
Quarter: 2013Q3

REPORT INFORMATION
  Report Type: Spontaneous
  Country: JP (occurrence: JP)
  Receive Date: 20130712
  Receipt Date: 20130712
  Transmission Date: 20140515
  Serious: Yes (Hospitalization)
  Sender: FDA-Public Use
  Company Number: JP-ELI_LILLY_AND_COMPANY-JP201307001518

PATIENT
  Age: 68 Year
  Sex: Male

DRUGS (4)
  1. ALIMTA [Suspect]
     Indication: LUNG NEOPLASM MALIGNANT
     Route: 042
  2. CARBOPLATIN [Concomitant]
     Indication: LUNG NEOPLASM MALIGNANT
  3. VITAMIN B12 [Concomitant]
  4. FOLIC ACID [Concomitant]

REACTIONS (3)
  - Electrolyte depletion [Unknown]
  - Dizziness [Unknown]
  - Blood bilirubin increased [Unknown]
